FAERS Safety Report 6644480-X (Version None)
Quarter: 2010Q1

REPORT INFORMATION
  Report Type: 
  Country: None (occurrence: None)
  Receive Date: 20100319
  Receipt Date: 20100319
  Transmission Date: 20100710
  Serious: Yes (Hospitalization)
  Sender: FDA-Public Use
  Company Number: None

PATIENT
  Age: 76 Year
  Sex: Female
  Weight: 55 kg

DRUGS (14)
  1. DIGOXIN [Suspect]
     Indication: ATRIAL FIBRILLATION
     Dosage: 0.25MG DAILY PO, CHRONIC
     Route: 048
  2. TEMAZEPAM [Concomitant]
  3. SERTRALINE HCL [Concomitant]
  4. PRAVASTATIN [Concomitant]
  5. ALTACE [Concomitant]
  6. TRICOR [Concomitant]
  7. CYMBALTA [Concomitant]
  8. HUMALOG [Concomitant]
  9. LANTUS [Concomitant]
  10. GLUCOSAMINE [Concomitant]
  11. M.V.I. [Concomitant]
  12. LOVAZA [Concomitant]
  13. VIT D [Concomitant]
  14. COLACE [Concomitant]

REACTIONS (2)
  - THERAPEUTIC AGENT TOXICITY [None]
  - VERTIGO [None]
